FAERS Safety Report 25720430 (Version 1)
Quarter: 2025Q3

REPORT INFORMATION
  Report Type: Spontaneous
  Country: GB (occurrence: GB)
  Receive Date: 20250825
  Receipt Date: 20250825
  Transmission Date: 20251020
  Serious: Yes (Other)
  Sender: ALKEM
  Company Number: None

PATIENT
  Age: 43 Year
  Sex: Female

DRUGS (11)
  1. QUETIAPINE FUMARATE [Suspect]
     Active Substance: QUETIAPINE FUMARATE
     Indication: Product used for unknown indication
     Route: 065
  2. BUPRENORPHINE [Suspect]
     Active Substance: BUPRENORPHINE
     Indication: Drug use disorder
     Route: 065
     Dates: start: 20170505
  3. BUPRENORPHINE [Suspect]
     Active Substance: BUPRENORPHINE
     Route: 060
     Dates: start: 20190701
  4. BUPRENORPHINE [Suspect]
     Active Substance: BUPRENORPHINE
     Route: 065
     Dates: start: 20230523
  5. BUPRENORPHINE [Suspect]
     Active Substance: BUPRENORPHINE
     Route: 065
     Dates: start: 20230530
  6. BUPRENORPHINE [Suspect]
     Active Substance: BUPRENORPHINE
     Route: 065
     Dates: start: 20230606
  7. BUPRENORPHINE [Suspect]
     Active Substance: BUPRENORPHINE
     Route: 065
  8. BUPRENORPHINE [Suspect]
     Active Substance: BUPRENORPHINE
     Route: 065
  9. BUPRENORPHINE [Suspect]
     Active Substance: BUPRENORPHINE
     Route: 065
  10. SERTRALINE [Suspect]
     Active Substance: SERTRALINE HYDROCHLORIDE
     Indication: Depression
     Dosage: 150 MILLIGRAM, OD
     Route: 065
  11. SERTRALINE [Suspect]
     Active Substance: SERTRALINE HYDROCHLORIDE
     Dosage: 100 MILLIGRAM, OD (REDUCED DOSE)
     Route: 065

REACTIONS (2)
  - Hepatic fibrosis [Not Recovered/Not Resolved]
  - Liver function test abnormal [Not Recovered/Not Resolved]

NARRATIVE: CASE EVENT DATE: 20250624
